FAERS Safety Report 10170519 (Version 2)
Quarter: 2014Q2

REPORT INFORMATION
  Report Type: Spontaneous
  Country: PL (occurrence: PL)
  Receive Date: 20140513
  Receipt Date: 20140513
  Transmission Date: 20141212
  Serious: Yes (Hospitalization)
  Sender: FDA-Public Use
  Company Number: PHHY2014PL024745

PATIENT
  Age: 28 Year
  Sex: Female

DRUGS (2)
  1. GILENYA [Suspect]
     Indication: RELAPSING-REMITTING MULTIPLE SCLEROSIS
     Dosage: 1 DF, QD
     Route: 048
     Dates: start: 20131107
  2. FAMPYRA [Concomitant]
     Dosage: 1 DF, TID

REACTIONS (3)
  - Urinary tract infection bacterial [Recovering/Resolving]
  - White blood cells urine positive [Unknown]
  - Dysuria [Unknown]
